FAERS Safety Report 7531332-6 (Version None)
Quarter: 2011Q2

REPORT INFORMATION
  Report Type: 
  Country: None (occurrence: None)
  Receive Date: 20110608
  Receipt Date: 20110601
  Transmission Date: 20111010
  Serious: Yes (Hospitalization)
  Sender: FDA-Public Use
  Company Number: JP-BAYER-2011-047325

PATIENT
  Age: 77 Year
  Sex: Female

DRUGS (2)
  1. NEO-MINOPHAGEN C [Concomitant]
     Route: 065
  2. NEXAVAR [Suspect]
     Indication: HEPATIC NEOPLASM MALIGNANT
     Dosage: 400 MG, BID
     Route: 048
     Dates: start: 20110427, end: 20110503

REACTIONS (1)
  - COMA HEPATIC [None]
